FAERS Safety Report 8837292 (Version 1)
Quarter: 2012Q4

REPORT INFORMATION
  Report Type: 
  Country: FI (occurrence: FI)
  Receive Date: 20121012
  Receipt Date: 20121012
  Transmission Date: 20130627
  Serious: Yes (Disabling)
  Sender: FDA-Public Use
  Company Number: FI-009507513-1210FIN004428

PATIENT
  Age: 48 Year
  Sex: Male

DRUGS (3)
  1. PEGINTRON [Suspect]
     Dosage: UNK
     Dates: start: 2012, end: 20120704
  2. REBETOL [Suspect]
     Dosage: UNK
     Route: 048
     Dates: start: 2012, end: 20120704
  3. OXEPAM [Suspect]

REACTIONS (3)
  - Impaired driving ability [Unknown]
  - Job dissatisfaction [Unknown]
  - Aggression [Unknown]
